FAERS Safety Report 21701089 (Version 1)
Quarter: 2022Q4

REPORT INFORMATION
  Report Type: Spontaneous
  Country: US (occurrence: None)
  Receive Date: 20221207
  Receipt Date: 20221207
  Transmission Date: 20230113
  Serious: Yes (Hospitalization)
  Sender: FDA-Public Use
  Company Number: None

PATIENT
  Sex: Female

DRUGS (1)
  1. RETACRIT [Suspect]
     Active Substance: EPOETIN ALFA-EPBX
     Indication: Chronic kidney disease
     Dosage: OTHER STRENGTH : 4000U/ML;?OTHER QUANTITY : 4000 UNITS;?FREQUENCY : WEEKLY;?
     Route: 058
     Dates: start: 20220216

REACTIONS (1)
  - Pneumonia [None]
